FAERS Safety Report 7333605-9 (Version None)
Quarter: 2011Q1

REPORT INFORMATION
  Report Type: 
  Country: None (occurrence: None)
  Receive Date: 20110304
  Receipt Date: 20110225
  Transmission Date: 20110831
  Serious: Yes (Hospitalization, Other)
  Sender: FDA-Public Use
  Company Number: US-AMGEN-USASP2011011021

PATIENT
  Age: 65 Year
  Sex: Female

DRUGS (4)
  1. ENBREL [Suspect]
     Indication: RHEUMATOID ARTHRITIS
     Dosage: 50 MG, QWK
     Dates: start: 20020101
  2. GOLIMUMAB [Concomitant]
  3. HUMIRA [Concomitant]
  4. REMICADE [Concomitant]

REACTIONS (8)
  - CHONDROPATHY [None]
  - SWELLING [None]
  - RHEUMATOID ARTHRITIS [None]
  - ARTHROPATHY [None]
  - LIMB DEFORMITY [None]
  - ARTHRALGIA [None]
  - DRUG INEFFECTIVE [None]
  - URTICARIA [None]
